FAERS Safety Report 18087747 (Version 2)
Quarter: 2020Q3

REPORT INFORMATION
  Report Type: Spontaneous
  Country: AU (occurrence: AU)
  Receive Date: 20200729
  Receipt Date: 20200821
  Transmission Date: 20201103
  Serious: Yes (Other)
  Sender: FDA-Public Use
  Company Number: AU-SHIRE-AU202023999

PATIENT

DRUGS (3)
  1. INTUNIV [Suspect]
     Active Substance: GUANFACINE HYDROCHLORIDE
     Indication: OPPOSITIONAL DEFIANT DISORDER
  2. CATAPRES [Concomitant]
     Active Substance: CLONIDINE HYDROCHLORIDE
     Indication: INSOMNIA
  3. INTUNIV [Suspect]
     Active Substance: GUANFACINE HYDROCHLORIDE
     Indication: ATTENTION DEFICIT HYPERACTIVITY DISORDER
     Dosage: 1 MILLIGRAM, 1X/DAY:QD
     Route: 048
     Dates: start: 20200310, end: 20200723

REACTIONS (4)
  - Fatigue [Unknown]
  - Somnolence [Unknown]
  - Mood swings [Not Recovered/Not Resolved]
  - Suicidal ideation [Unknown]

NARRATIVE: CASE EVENT DATE: 20200721
